FAERS Safety Report 7804991-8 (Version None)
Quarter: 2011Q4

REPORT INFORMATION
  Report Type: 
  Country: None (occurrence: None)
  Receive Date: 20111010
  Receipt Date: 20111005
  Transmission Date: 20120403
  Serious: Yes (Hospitalization)
  Sender: FDA-Public Use
  Company Number: US-GLAXOSMITHKLINE-A0766639A

PATIENT
  Age: 54 Year
  Sex: Female
  Weight: 136.8 kg

DRUGS (6)
  1. INSULIN [Concomitant]
  2. AVANDIA [Suspect]
     Indication: TYPE 2 DIABETES MELLITUS
     Route: 048
     Dates: start: 20000101
  3. DIOVAN [Concomitant]
  4. PRAVACHOL [Concomitant]
  5. TOPROL-XL [Concomitant]
  6. GLUCOTROL [Concomitant]

REACTIONS (1)
  - MYOCARDIAL INFARCTION [None]
